FAERS Safety Report 8128291-4 (Version None)
Quarter: 2012Q1

REPORT INFORMATION
  Report Type: 
  Country: None (occurrence: None)
  Receive Date: 20120210
  Receipt Date: 20120201
  Transmission Date: 20120608
  Serious: Yes (Hospitalization)
  Sender: FDA-Public Use
  Company Number: GB-ELI_LILLY_AND_COMPANY-GB201202000221

PATIENT
  Sex: Female

DRUGS (12)
  1. AMLODIPINE [Concomitant]
     Dosage: 5 MG, QD
     Route: 048
  2. PREDNISOLONE [Concomitant]
     Dosage: 5 MG, QD
     Route: 048
  3. ZAPAIN [Concomitant]
     Dosage: 30/500, PRN
     Route: 048
  4. SPIRIVA [Concomitant]
     Dosage: 2.5 DF, QD
     Route: 048
  5. FLUTICASONE PROPIONATE/SALMETEROL [Concomitant]
     Dosage: 250 PUFFS
  6. OMEPRAZOLE [Concomitant]
     Dosage: 40 MG, QD
     Route: 048
  7. PEMETREXED [Suspect]
     Indication: NON-SMALL CELL LUNG CANCER
     Dosage: 500 MG/M2, UNKNOWN
     Route: 042
     Dates: start: 20111026
  8. IRBESARTAN [Concomitant]
     Dosage: 150 MG, QD
     Route: 048
  9. SIMVASTATIN [Concomitant]
     Dosage: 40 MG, EACH EVENING
     Route: 048
  10. ALBUTEROL SULFATE AUTOHALER [Concomitant]
     Dosage: UNK
  11. CHANTIX [Concomitant]
     Dosage: 1 MG, QD
     Route: 048
  12. TAXOL [Suspect]
     Indication: NON-SMALL CELL LUNG CANCER
     Dosage: 175 MG/M2, UNKNOWN
     Route: 042
     Dates: start: 20111026

REACTIONS (1)
  - PULMONARY ARTERY THROMBOSIS [None]
